FAERS Safety Report 9710347 (Version 1)
Quarter: 2013Q4

REPORT INFORMATION
  Report Type: Spontaneous
  Country: US (occurrence: US)
  Receive Date: 20131126
  Receipt Date: 20131126
  Transmission Date: 20140711
  Serious: No
  Sender: FDA-Public Use
  Company Number: US-BRISTOL-MYERS SQUIBB COMPANY-18810259

PATIENT
  Age: 52 Year
  Sex: Female
  Weight: 95.69 kg

DRUGS (2)
  1. BYETTA PEN DISPOSABLE [Suspect]
     Indication: TYPE 2 DIABETES MELLITUS
     Route: 058
  2. SYNTHROID [Concomitant]

REACTIONS (5)
  - Food poisoning [Recovering/Resolving]
  - Nausea [Unknown]
  - Diarrhoea [Unknown]
  - Malaise [Unknown]
  - Asthenia [Unknown]
